FAERS Safety Report 9918067 (Version 4)
Quarter: 2014Q2

REPORT INFORMATION
  Report Type: Report from Study
  Country: IE (occurrence: IE)
  Receive Date: 20140223
  Receipt Date: 20140519
  Transmission Date: 20141212
  Serious: Yes (Hospitalization)
  Sender: FDA-Public Use
  Company Number: IE-US-EMD SERONO, INC.-7270606

PATIENT
  Age: 46 Year
  Sex: Male

DRUGS (4)
  1. REBIF [Suspect]
     Indication: SECONDARY PROGRESSIVE MULTIPLE SCLEROSIS
     Route: 058
     Dates: start: 20040616, end: 20120427
  2. REBIF [Suspect]
     Route: 058
     Dates: start: 20120815
  3. KEPPRA [Concomitant]
     Indication: CONVULSION
     Route: 048
  4. CALCICHEW-D3 [Concomitant]
     Indication: PRODUCT USED FOR UNKNOWN INDICATION
     Route: 048

REACTIONS (2)
  - Sepsis [Recovered/Resolved]
  - Off label use [Unknown]
